FAERS Safety Report 23304154 (Version 2)
Quarter: 2024Q1

REPORT INFORMATION
  Report Type: Spontaneous
  Country: FR (occurrence: FR)
  Receive Date: 20231218
  Receipt Date: 20240105
  Transmission Date: 20240409
  Serious: Yes (Life-Threatening, Hospitalization)
  Sender: FDA-Public Use
  Company Number: FR-BoehringerIngelheim-2023-BI-278249

PATIENT
  Age: 2 Year
  Sex: Male
  Weight: 10 kg

DRUGS (9)
  1. CLONIDINE [Suspect]
     Active Substance: CLONIDINE
     Indication: Dystonia
     Dates: start: 20231117, end: 20231117
  2. CLONIDINE [Suspect]
     Active Substance: CLONIDINE
     Dates: start: 20231118, end: 20231120
  3. GENTAMICIN [Suspect]
     Active Substance: GENTAMICIN
     Indication: Hyperthermia
     Dates: start: 20231120, end: 20231120
  4. CEFTRIAXONE SODIUM [Suspect]
     Active Substance: CEFTRIAXONE SODIUM
     Indication: Hyperthermia
     Dates: start: 20231120, end: 20231120
  5. AMITRIPTYLINE HYDROCHLORIDE [Suspect]
     Active Substance: AMITRIPTYLINE HYDROCHLORIDE
     Indication: Dystonia
     Dosage: 2 DROP
  6. ACETAMINOPHEN [Suspect]
     Active Substance: ACETAMINOPHEN
     Indication: Pain
     Dates: start: 20231102, end: 20231111
  7. IBUPROFEN [Suspect]
     Active Substance: IBUPROFEN
     Indication: Pain
     Dates: start: 20231118, end: 20231120
  8. RIVOTRIL [Suspect]
     Active Substance: CLONAZEPAM
     Indication: Dystonia
     Dosage: 1 DROP
     Dates: start: 20231118, end: 20231120
  9. VANCOMYCIN HYDROCHLORIDE [Suspect]
     Active Substance: VANCOMYCIN HYDROCHLORIDE
     Indication: Hyperthermia
     Dates: start: 20231120, end: 20231120

REACTIONS (7)
  - Hypotension [Recovered/Resolved]
  - Bradycardia [Recovered/Resolved]
  - Incorrect dose administered [Recovered/Resolved]
  - Accidental overdose [Recovered/Resolved]
  - Acute kidney injury [Recovered/Resolved]
  - Hepatocellular injury [Recovering/Resolving]
  - Hyperthermia [Recovered/Resolved]

NARRATIVE: CASE EVENT DATE: 20231117
